FAERS Safety Report 7185672-3 (Version None)
Quarter: 2010Q4

REPORT INFORMATION
  Report Type: 
  Country: None (occurrence: None)
  Receive Date: 20101222
  Receipt Date: 20101215
  Transmission Date: 20110411
  Serious: Yes (Death)
  Sender: FDA-Public Use
  Company Number: PHHY2010US85888

PATIENT
  Sex: Male

DRUGS (5)
  1. GLEEVEC [Suspect]
     Indication: ACUTE LYMPHOCYTIC LEUKAEMIA
     Dosage: 400 MG DAILY
     Route: 048
     Dates: start: 20101101, end: 20101122
  2. AMLODIPINE [Concomitant]
     Dosage: 2.5 MG, QD
  3. VYTORIN [Concomitant]
     Dosage: 20 MG, QD
     Route: 048
  4. AVODART [Concomitant]
     Dosage: 0.5 MG, QD
     Route: 048
  5. CALCIUM PLUS D [Concomitant]

REACTIONS (2)
  - NAUSEA [None]
  - NON-HODGKIN'S LYMPHOMA [None]
